FAERS Safety Report 18962347 (Version 1)
Quarter: 2021Q1

REPORT INFORMATION
  Report Type: Spontaneous
  Country: US (occurrence: US)
  Receive Date: 20210302
  Receipt Date: 20210302
  Transmission Date: 20210420
  Serious: No
  Sender: FDA-Public Use
  Company Number: US-AMGEN-USASP2021032049

PATIENT
  Age: 50 Year
  Sex: Female

DRUGS (34)
  1. ASPIRIN [ACETYLSALICYLIC ACID] [Concomitant]
     Active Substance: ASPIRIN
  2. ATORVASTATIN [Concomitant]
     Active Substance: ATORVASTATIN
  3. CLOTRIMAZOLE. [Concomitant]
     Active Substance: CLOTRIMAZOLE
  4. DULERA [Concomitant]
     Active Substance: FORMOTEROL FUMARATE DIHYDRATE\MOMETASONE FUROATE
  5. FUROSEMIDE. [Concomitant]
     Active Substance: FUROSEMIDE
  6. HUMULINE [Concomitant]
  7. RANITIDINE. [Concomitant]
     Active Substance: RANITIDINE
  8. BUPROPION. [Concomitant]
     Active Substance: BUPROPION
  9. JARDIANCE [Concomitant]
     Active Substance: EMPAGLIFLOZIN
  10. SUMATRIPTAN. [Concomitant]
     Active Substance: SUMATRIPTAN
  11. OTEZLA [Suspect]
     Active Substance: APREMILAST
     Indication: PSORIASIS
     Dosage: 30 MILLIGRAM, BID
     Route: 048
     Dates: start: 20201001
  12. OTEZLA [Suspect]
     Active Substance: APREMILAST
     Dosage: 30 MILLIGRAM, QD
     Route: 048
  13. CLOBETASOL [Concomitant]
     Active Substance: CLOBETASOL
  14. CULTURELLE [Concomitant]
     Active Substance: LACTOBACILLUS RHAMNOSUS
  15. DOK [Concomitant]
     Active Substance: DOCUSATE SODIUM
  16. FLUCONAZOLE. [Concomitant]
     Active Substance: FLUCONAZOLE
  17. IRBESARTAN. [Concomitant]
     Active Substance: IRBESARTAN
  18. OXYBUTYNIN. [Concomitant]
     Active Substance: OXYBUTYNIN CHLORIDE
  19. PROAIR HFA [Concomitant]
     Active Substance: ALBUTEROL SULFATE
  20. GABAPENTIN. [Concomitant]
     Active Substance: GABAPENTIN
  21. PANTOPRAZOLE [Concomitant]
     Active Substance: PANTOPRAZOLE
  22. TRIAMCINOLONE [Concomitant]
     Active Substance: TRIAMCINOLONE
  23. ALPRAZOLAM. [Concomitant]
     Active Substance: ALPRAZOLAM
  24. DERMA SMOOTH [Concomitant]
  25. CARVEDILOL. [Concomitant]
     Active Substance: CARVEDILOL
  26. KISQALI [Concomitant]
     Active Substance: RIBOCICLIB
  27. LAMOTRIGINE. [Concomitant]
     Active Substance: LAMOTRIGINE
  28. NYSTATIN. [Concomitant]
     Active Substance: NYSTATIN
  29. ECOTRIN [Concomitant]
     Active Substance: ASPIRIN
  30. FAMOTIDINE. [Concomitant]
     Active Substance: FAMOTIDINE
  31. TAMOXIFEN [Concomitant]
     Active Substance: TAMOXIFEN
  32. METFORMIN [Concomitant]
     Active Substance: METFORMIN HYDROCHLORIDE
  33. MONTELUKAST [Concomitant]
     Active Substance: MONTELUKAST SODIUM
  34. VERAPAMIL [Concomitant]
     Active Substance: VERAPAMIL HYDROCHLORIDE

REACTIONS (2)
  - Psoriasis [Not Recovered/Not Resolved]
  - Headache [Recovered/Resolved]
